FAERS Safety Report 4880512-7 (Version None)
Quarter: 2005Q4

REPORT INFORMATION
  Report Type: 
  Country: None (occurrence: None)
  Receive Date: 20051223
  Receipt Date: 20051012
  Transmission Date: 20060501
  Serious: No
  Sender: FDA-Public Use
  Company Number: 05P-163-0291629-00

PATIENT
  Age: 67 Year
  Sex: Male
  Weight: 74.3899 kg

DRUGS (8)
  1. HUMIRA [Suspect]
     Indication: RHEUMATOID ARTHRITIS
     Dosage: SEE IMAGE
     Route: 058
     Dates: start: 20030421, end: 20050201
  2. HUMIRA [Suspect]
     Indication: RHEUMATOID ARTHRITIS
     Dosage: SEE IMAGE
     Route: 058
     Dates: start: 20050801
  3. LORATADINE [Concomitant]
  4. METHOTREXATE [Concomitant]
  5. TOPROL [Concomitant]
  6. ATORVASTATIN CALCIUM [Concomitant]
  7. FOLIC ACID [Concomitant]
  8. CALCIUM GLUCONATE [Concomitant]

REACTIONS (4)
  - COUGH [None]
  - GINGIVITIS [None]
  - LARYNGITIS [None]
  - RHINORRHOEA [None]
